FAERS Safety Report 8483394-X (Version None)
Quarter: 2012Q3

REPORT INFORMATION
  Report Type: 
  Country: None (occurrence: None)
  Receive Date: 20120702
  Receipt Date: 20120622
  Transmission Date: 20120928
  Serious: Yes (Other)
  Sender: FDA-Public Use
  Company Number: ES-JNJFOC-20120612588

PATIENT
  Sex: Male
  Weight: 57 kg

DRUGS (4)
  1. INFLIXIMAB, RECOMBINANT [Suspect]
     Indication: CROHN'S DISEASE
     Dosage: WEEK 0, 2, 6 AND EVERY 8 WEEKS
     Route: 042
     Dates: start: 20081020
  2. INFLIXIMAB, RECOMBINANT [Suspect]
     Route: 042
     Dates: start: 20101201
  3. INFLIXIMAB, RECOMBINANT [Suspect]
     Route: 042
     Dates: start: 20100901
  4. AZATHIOPRINE [Concomitant]
     Route: 065

REACTIONS (1)
  - HERPES ZOSTER [None]
